FAERS Safety Report 24625936 (Version 2)
Quarter: 2025Q2

REPORT INFORMATION
  Report Type: Spontaneous
  Country: US (occurrence: US)
  Receive Date: 20241115
  Receipt Date: 20250417
  Transmission Date: 20250716
  Serious: No
  Sender: PFIZER
  Company Number: US-PFIZER INC-202400301446

PATIENT
  Age: 71 Year
  Sex: Female

DRUGS (8)
  1. IBRANCE [Suspect]
     Active Substance: PALBOCICLIB
     Route: 048
     Dates: start: 20240808
  2. IBRANCE [Suspect]
     Active Substance: PALBOCICLIB
     Route: 048
     Dates: start: 20250102
  3. ATENOLOL [Concomitant]
     Active Substance: ATENOLOL
  4. DILTIAZEM [Concomitant]
     Active Substance: DILTIAZEM
  5. LETROZOLE [Concomitant]
     Active Substance: LETROZOLE
  6. TRIAMTERENE AND HYDROCHLOROTHIAZIDE [Concomitant]
     Active Substance: HYDROCHLOROTHIAZIDE\TRIAMTERENE
  7. ELIQUIS [Concomitant]
     Active Substance: APIXABAN
  8. TIADYLT [Concomitant]

REACTIONS (1)
  - Fatigue [Not Recovered/Not Resolved]

NARRATIVE: CASE EVENT DATE: 20240101
